FAERS Safety Report 25179599 (Version 4)
Quarter: 2025Q4

REPORT INFORMATION
  Report Type: Report from Study
  Country: US (occurrence: US)
  Receive Date: 20250409
  Receipt Date: 20251224
  Transmission Date: 20260119
  Serious: Yes (Hospitalization, Other)
  Sender: BIOVITRUM
  Company Number: US-BIOVITRUM-2025-US-004330

PATIENT
  Age: 35 Year
  Sex: Female

DRUGS (1)
  1. KINERET [Suspect]
     Active Substance: ANAKINRA
     Indication: Still^s disease
     Dosage: DAILY
     Route: 058
     Dates: start: 20250318

REACTIONS (14)
  - Injection site pain [Unknown]
  - Off label use [Not Recovered/Not Resolved]
  - Injection site urticaria [Unknown]
  - Injection site erythema [Unknown]
  - Nausea [Unknown]
  - Abdominal pain upper [Unknown]
  - Discomfort [Unknown]
  - Condition aggravated [Unknown]
  - Still^s disease [Unknown]
  - Infection [Unknown]
  - Injection site scar [Unknown]
  - Injection site inflammation [Unknown]
  - Injection site reaction [Unknown]
  - Injection site bruising [Unknown]

NARRATIVE: CASE EVENT DATE: 20250318
